FAERS Safety Report 4439117-4 (Version None)
Quarter: 2004Q3

REPORT INFORMATION
  Report Type: 
  Country: None (occurrence: None)
  Receive Date: 20040831
  Receipt Date: 20040818
  Transmission Date: 20050211
  Serious: Yes (Death)
  Sender: FDA-Public Use
  Company Number: 105006ISR

PATIENT
  Age: 31 Year
  Sex: Male

DRUGS (6)
  1. CISPLATIN [Suspect]
     Indication: TESTIS CANCER
     Dosage: 40.8 MILLIGRAM
     Dates: start: 20010713, end: 20040718
  2. BLEOMYCIN [Suspect]
     Indication: TESTIS CANCER
     Dosage: 3000 INTERNATIO
     Dates: start: 20070622, end: 20040627
  3. ETOPOSIDE [Suspect]
     Indication: TESTIS CANCER
     Dosage: 204 MILLIGRAM
  4. ONDANSETRON HCL [Concomitant]
  5. DEXAMETHASONE [Concomitant]
  6. DIAZEPAM [Concomitant]

REACTIONS (4)
  - BLOOD PRESSURE DECREASED [None]
  - CARDIAC ARREST [None]
  - CORONARY ARTERY THROMBOSIS [None]
  - MYOCARDIAL INFARCTION [None]
